FAERS Safety Report 10896395 (Version 1)
Quarter: 2015Q1

REPORT INFORMATION
  Report Type: Spontaneous
  Country: US (occurrence: US)
  Receive Date: 20150309
  Receipt Date: 20150309
  Transmission Date: 20150721
  Serious: Yes (Other)
  Sender: FDA-Public Use
  Company Number: US-CIPLA LTD.-2015US01575

PATIENT

DRUGS (2)
  1. LIPOSOMAL CYTARABINE [Suspect]
     Active Substance: CYTARABINE
     Indication: ADENOCARCINOMA
     Dosage: 25 MG EVERY 2 WEEKS
  2. TOPOTECAN [Suspect]
     Active Substance: TOPOTECAN\TOPOTECAN HYDROCHLORIDE
     Indication: ADENOCARCINOMA
     Dosage: 0.4 MG TWICE WEEKLY
     Route: 042

REACTIONS (1)
  - Cyst [Recovered/Resolved]
